FAERS Safety Report 8445019-9 (Version None)
Quarter: 2012Q2

REPORT INFORMATION
  Report Type: 
  Country: None (occurrence: None)
  Receive Date: 20120618
  Receipt Date: 20120612
  Transmission Date: 20120825
  Serious: Yes (Death, Other)
  Sender: FDA-Public Use
  Company Number: US-SAVIENT-2012S1000055

PATIENT
  Age: 22 Year
  Sex: Male
  Weight: 72.58 kg

DRUGS (11)
  1. PREDNISONE [Concomitant]
     Indication: GOUT
     Route: 048
  2. KEPPRA [Concomitant]
     Indication: PRODUCT USED FOR UNKNOWN INDICATION
  3. KRYSTEXXA [Suspect]
     Indication: GOUT
     Route: 042
     Dates: start: 20120515, end: 20120515
  4. TYLENOL (CAPLET) [Concomitant]
     Indication: PREMEDICATION
     Dates: start: 20120515, end: 20120515
  5. LISINOPRIL [Concomitant]
     Indication: PRODUCT USED FOR UNKNOWN INDICATION
  6. XANAX [Concomitant]
     Indication: PRODUCT USED FOR UNKNOWN INDICATION
  7. PREDNISONE [Concomitant]
     Route: 048
  8. LABETALOL HCL [Concomitant]
     Indication: PRODUCT USED FOR UNKNOWN INDICATION
  9. SOLU-MEDROL [Concomitant]
     Indication: PREMEDICATION
     Dates: start: 20120515, end: 20120515
  10. OXYCONTIN [Concomitant]
     Indication: PAIN
  11. DURAGESIC-100 [Concomitant]
     Indication: PRODUCT USED FOR UNKNOWN INDICATION

REACTIONS (4)
  - RESPIRATORY ARREST [None]
  - PAIN [None]
  - VENTRICULAR TACHYCARDIA [None]
  - VENTRICULAR FIBRILLATION [None]
